FAERS Safety Report 7335019-4 (Version None)
Quarter: 2011Q1

REPORT INFORMATION
  Report Type: 
  Country: None (occurrence: None)
  Receive Date: 20110307
  Receipt Date: 20110301
  Transmission Date: 20110831
  Serious: Yes (Other)
  Sender: FDA-Public Use
  Company Number: US-ROCHE-763269

PATIENT
  Age: 19 Year
  Sex: Female
  Weight: 56.7 kg

DRUGS (2)
  1. KLONOPIN [Suspect]
     Indication: BIPOLAR DISORDER
     Dosage: DOSE 1 MG HALF A TABLET
     Route: 048
     Dates: start: 20110218
  2. PRISTIQ [Suspect]
     Indication: BIPOLAR DISORDER
     Dosage: PROLONGED RELEASE TABLET
     Route: 048
     Dates: start: 20110216, end: 20110217

REACTIONS (11)
  - BALANCE DISORDER [None]
  - RESPIRATORY RATE INCREASED [None]
  - NAUSEA [None]
  - HEART RATE INCREASED [None]
  - WEIGHT DECREASED [None]
  - VOMITING [None]
  - ILL-DEFINED DISORDER [None]
  - DIZZINESS [None]
  - HYPOAESTHESIA [None]
  - HYPERSOMNIA [None]
  - BLOOD PRESSURE DECREASED [None]
